FAERS Safety Report 21328644 (Version 1)
Quarter: 2022Q3

REPORT INFORMATION
  Report Type: Spontaneous
  Country: US (occurrence: US)
  Receive Date: 20220913
  Receipt Date: 20220913
  Transmission Date: 20221026
  Serious: No
  Sender: FDA-Public Use
  Company Number: US-BAYER-2022A127125

PATIENT
  Age: 18 Year
  Sex: Female

DRUGS (4)
  1. CLARITIN [Suspect]
     Active Substance: LORATADINE
     Indication: Hypersensitivity
     Dosage: 1 DF, QD
     Route: 048
     Dates: start: 20220909
  2. CLARITIN [Suspect]
     Active Substance: LORATADINE
     Indication: Nasopharyngitis
  3. KEPPRA [Concomitant]
     Active Substance: LEVETIRACETAM
  4. VIMPAT [Concomitant]
     Active Substance: LACOSAMIDE
     Dosage: 500 MG

REACTIONS (1)
  - Wrong technique in product usage process [Unknown]

NARRATIVE: CASE EVENT DATE: 20220909
